APPROVED DRUG PRODUCT: ZIANA
Active Ingredient: CLINDAMYCIN PHOSPHATE; TRETINOIN
Strength: 1.2%;0.025%
Dosage Form/Route: GEL;TOPICAL
Application: N050802 | Product #001 | TE Code: AB1
Applicant: BAUSCH HEALTH US LLC
Approved: Nov 7, 2006 | RLD: Yes | RS: Yes | Type: RX